FAERS Safety Report 23984740 (Version 2)
Quarter: 2024Q3

REPORT INFORMATION
  Report Type: Spontaneous
  Country: GB (occurrence: GB)
  Receive Date: 20240618
  Receipt Date: 20240802
  Transmission Date: 20241016
  Serious: Yes (Other)
  Sender: NOVARTIS
  Company Number: GB-002147023-NVSC2024GB125135

PATIENT
  Age: 58 Year
  Sex: Female
  Weight: 77.8 kg

DRUGS (2)
  1. KESIMPTA [Suspect]
     Active Substance: OFATUMUMAB
     Indication: Relapsing-remitting multiple sclerosis
     Dosage: UNK, QMO (20MG/0.4ML)
     Route: 058
     Dates: start: 202210
  2. TOPIRAMATE [Concomitant]
     Active Substance: TOPIRAMATE
     Indication: Migraine
     Dosage: UNK
     Route: 048

REACTIONS (6)
  - Multiple sclerosis [Unknown]
  - Hypoaesthesia [Recovered/Resolved with Sequelae]
  - Dizziness [Recovered/Resolved with Sequelae]
  - Multiple sclerosis relapse [Unknown]
  - Multiple sclerosis [Recovered/Resolved with Sequelae]
  - CD19 lymphocytes decreased [Unknown]

NARRATIVE: CASE EVENT DATE: 20230701
